FAERS Safety Report 5512234-3 (Version None)
Quarter: 2007Q4

REPORT INFORMATION
  Report Type: 
  Country: None (occurrence: None)
  Receive Date: 20071108
  Receipt Date: 20071108
  Transmission Date: 20080405
  Serious: Yes (Other)
  Sender: FDA-Public Use
  Company Number: None

PATIENT

DRUGS (2)
  1. PACERONE [Suspect]
     Indication: ATRIAL FIBRILLATION
     Dosage: 200 MG
  2. AMIODARONE HCL [Suspect]
     Dosage: 200 MG

REACTIONS (2)
  - ATRIAL FIBRILLATION [None]
  - DRUG INTOLERANCE [None]
